FAERS Safety Report 6210870-2 (Version None)
Quarter: 2009Q2

REPORT INFORMATION
  Report Type: 
  Country: None (occurrence: None)
  Receive Date: 20090601
  Receipt Date: 20090520
  Transmission Date: 20091009
  Serious: Yes (Other)
  Sender: FDA-Public Use
  Company Number: US-PFIZER INC-2009203621

PATIENT
  Sex: Female
  Weight: 46.72 kg

DRUGS (6)
  1. CHANTIX [Suspect]
     Indication: SMOKING CESSATION THERAPY
     Dosage: UNK
     Dates: start: 20090416, end: 20090519
  2. PREDNISONE [Concomitant]
     Route: 048
     Dates: start: 19760101
  3. ATIVAN [Concomitant]
     Dosage: UNK
  4. RESTORIL [Concomitant]
     Dosage: UNK
  5. IBUPROFEN [Concomitant]
     Dosage: UNK
  6. CYMBALTA [Concomitant]
     Dosage: UNK

REACTIONS (1)
  - PARANOIA [None]
